FAERS Safety Report 21992146 (Version 1)
Quarter: 2023Q1

REPORT INFORMATION
  Report Type: Spontaneous
  Country: US (occurrence: US)
  Receive Date: 20230214
  Receipt Date: 20230214
  Transmission Date: 20230417
  Serious: No
  Sender: FDA-Public Use
  Company Number: US-GSK-US2023018094

PATIENT
  Age: 90 Year
  Sex: Male

DRUGS (1)
  1. TRELEGY ELLIPTA [Suspect]
     Active Substance: FLUTICASONE FUROATE\UMECLIDINIUM BROMIDE\VILANTEROL TRIFENATATE
     Indication: Chronic obstructive pulmonary disease
     Dosage: 100/62.5/25MCG INH 30
     Route: 055
     Dates: start: 20220912

REACTIONS (2)
  - Cardiac disorder [Not Recovered/Not Resolved]
  - Cardiac pacemaker replacement [Not Recovered/Not Resolved]

NARRATIVE: CASE EVENT DATE: 20230206
